FAERS Safety Report 4661526-9 (Version None)
Quarter: 2005Q2

REPORT INFORMATION
  Report Type: 
  Country: None (occurrence: None)
  Receive Date: 20050511
  Receipt Date: 20050511
  Transmission Date: 20051028
  Serious: Yes (Death)
  Sender: FDA-Public Use
  Company Number: None

PATIENT
  Sex: Female
  Weight: 78.1 kg

DRUGS (1)
  1. GEMZAR [Suspect]
     Dosage: 1000 MG/M2 IV DAYS 1, 8, 15 EVERY 28 DAYS
     Route: 042
     Dates: start: 20050103

REACTIONS (1)
  - PNEUMONIA [None]
